FAERS Safety Report 6482755-8 (Version None)
Quarter: 2009Q4

REPORT INFORMATION
  Report Type: 
  Country: None (occurrence: None)
  Receive Date: 20091204
  Receipt Date: 20091123
  Transmission Date: 20100525
  Serious: Yes (Other)
  Sender: FDA-Public Use
  Company Number: 1000010429

PATIENT
  Age: 57 Year
  Sex: Male

DRUGS (2)
  1. CITALOPRAM HYDROBROMIDE [Suspect]
     Dosage: 40 MG (40 MG,1 IN 1 D)
  2. CITALOPRAM HYDROBROMIDE [Suspect]
     Dosage: 10 MG (10MG,1 IN 1 D)

REACTIONS (4)
  - DYSAESTHESIA [None]
  - HEADACHE [None]
  - SACCADIC EYE MOVEMENT [None]
  - WITHDRAWAL SYNDROME [None]
